FAERS Safety Report 22121724 (Version 1)
Quarter: 2023Q1

REPORT INFORMATION
  Report Type: Report from Study
  Country: GB (occurrence: None)
  Receive Date: 20230321
  Receipt Date: 20230321
  Transmission Date: 20230418
  Serious: Yes (Hospitalization)
  Sender: FDA-Public Use
  Company Number: GB-ROCHE-3135134

PATIENT
  Age: 59 Year
  Sex: Male

DRUGS (5)
  1. IPATASERTIB [Suspect]
     Active Substance: IPATASERTIB
     Indication: Glioblastoma
     Dosage: ON 04/JUL/2022 HE RECEIVED MOST RECENT DOSE OF STUDY DRUG PRIOR TO ADVERSE EVENT
     Route: 048
     Dates: start: 20220629, end: 20220705
  2. ATEZOLIZUMAB [Suspect]
     Active Substance: ATEZOLIZUMAB
     Indication: Glioblastoma
     Dosage: ON 29/JUN/2022 HE RECEIVED MOST RECENT DOSE OF STUDY DRUG PRIOR TO ADVERSE EVENT
     Route: 041
     Dates: start: 20220629, end: 20220705
  3. DEXAMETHASONE [Concomitant]
     Active Substance: DEXAMETHASONE
     Route: 042
     Dates: start: 20220705, end: 20220706
  4. DEXAMETHASONE [Concomitant]
     Active Substance: DEXAMETHASONE
     Route: 048
     Dates: start: 20220706
  5. LEVETIRACETAM [Concomitant]
     Active Substance: LEVETIRACETAM
     Route: 048
     Dates: start: 20220706

REACTIONS (1)
  - Gait disturbance [Recovered/Resolved]

NARRATIVE: CASE EVENT DATE: 20220705
